FAERS Safety Report 23352987 (Version 5)
Quarter: 2025Q4

REPORT INFORMATION
  Report Type: Spontaneous
  Country: AU (occurrence: AU)
  Receive Date: 20231230
  Receipt Date: 20251120
  Transmission Date: 20260117
  Serious: Yes (Other)
  Sender: ABBVIE
  Company Number: AU-LUNDBECK-DKLU3071781

PATIENT
  Age: 49 Year
  Sex: Male
  Weight: 129 kg

DRUGS (11)
  1. CITALOPRAM [Suspect]
     Active Substance: CITALOPRAM
     Indication: Product used for unknown indication
     Dosage: 20MG ORALLY MANE
     Route: 048
  2. CLOZAPINE [Suspect]
     Active Substance: CLOZAPINE
     Indication: Schizophrenia
     Dosage: DOSES AS HIGH AS 800MG, DID NOT BELIEVE TO HAVE BEEN USEFUL, INTERMITTENT NON-COMPLIANCE
     Route: 065
     Dates: start: 2006
  3. DIAZEPAM [Suspect]
     Active Substance: DIAZEPAM
     Indication: Product used for unknown indication
     Dosage: 5MG ORALLY AT MIDDAY PRN
     Route: 048
  4. PROPRANOLOL HYDROCHLORIDE [Suspect]
     Active Substance: PROPRANOLOL HYDROCHLORIDE
     Indication: Anxiety
     Dosage: 10MG TDS PRN
     Route: 048
  5. PROPRANOLOL HYDROCHLORIDE [Suspect]
     Active Substance: PROPRANOLOL HYDROCHLORIDE
     Indication: Anxiety
     Dosage: UP TO 40MG ONCE PER DAY FOR ANXIETY SYMPTOMS
     Route: 048
  6. NICOTINE [Suspect]
     Active Substance: NICOTINE
     Indication: Product used for unknown indication
     Dosage: 15 DOSAGE FORMS DAILY
     Route: 065
  7. ATORVASTATIN CALCIUM [Suspect]
     Active Substance: ATORVASTATIN CALCIUM
     Indication: Product used for unknown indication
     Dosage: 40MG ORALLY AT NIGHT
     Route: 048
  8. RABEPRAZOLE [Suspect]
     Active Substance: RABEPRAZOLE
     Indication: Product used for unknown indication
     Dosage: 20MG ORALLY MANE
     Route: 048
  9. CARIPRAZINE [Suspect]
     Active Substance: CARIPRAZINE
     Indication: Product used for unknown indication
     Route: 048
     Dates: start: 20221223
  10. ATROPINE [Suspect]
     Active Substance: ATROPINE
     Indication: Salivary hypersecretion
     Dosage: STRENGTH: 0.1%?DOSE: TWO DROPS NOCTE, DOSE FORM DROPS
     Route: 065
  11. THIAMINE [Suspect]
     Active Substance: THIAMINE
     Indication: Product used for unknown indication
     Route: 065

REACTIONS (14)
  - Electrocardiogram ST-T change [Unknown]
  - Diarrhoea [Recovered/Resolved]
  - Blood calcium abnormal [Unknown]
  - Blood glucose increased [Unknown]
  - QRS axis abnormal [Unknown]
  - Left ventricular hypertrophy [Unknown]
  - Electrocardiogram QT prolonged [Unknown]
  - Blood prolactin abnormal [Unknown]
  - Blood urea abnormal [Unknown]
  - Liver function test abnormal [Unknown]
  - Sleep apnoea syndrome [Unknown]
  - Vitamin D abnormal [Unknown]
  - Orthostatic hypotension [Recovering/Resolving]
  - Treatment noncompliance [Unknown]
